FAERS Safety Report 24965223 (Version 2)
Quarter: 2025Q1

REPORT INFORMATION
  Report Type: Spontaneous
  Country: CA (occurrence: CA)
  Receive Date: 20250213
  Receipt Date: 20250303
  Transmission Date: 20250408
  Serious: Yes (Death, Hospitalization, Congenital Anomaly, Other)
  Sender: CSL BEHRING
  Company Number: CA-BEH-2025195369

PATIENT
  Age: 85 Year
  Sex: Male
  Weight: 69 kg

DRUGS (3)
  1. HUMAN IMMUNOGLOBULIN G [Suspect]
     Active Substance: HUMAN IMMUNOGLOBULIN G
     Indication: Secondary immunodeficiency
     Dosage: 10 G, QW
     Route: 058
  2. HUMAN IMMUNOGLOBULIN G [Suspect]
     Active Substance: HUMAN IMMUNOGLOBULIN G
     Dosage: 10 G, QW
     Route: 058
  3. HIZENTRA [Concomitant]
     Active Substance: HUMAN IMMUNOGLOBULIN G
     Indication: Product used for unknown indication
     Route: 065

REACTIONS (8)
  - Assisted suicide [Fatal]
  - Colorectal cancer metastatic [Fatal]
  - Fatigue [Fatal]
  - Hepatic cancer [Fatal]
  - Infection [Fatal]
  - Pyrexia [Fatal]
  - Testicular swelling [Fatal]
  - Off label use [Unknown]
